FAERS Safety Report 13033833 (Version 1)
Quarter: 2016Q4

REPORT INFORMATION
  Report Type: Spontaneous
  Country: US (occurrence: US)
  Receive Date: 20161215
  Receipt Date: 20161215
  Transmission Date: 20170207
  Serious: No
  Sender: FDA-Public Use
  Company Number: None

PATIENT
  Age: 83 Year
  Sex: Female

DRUGS (1)
  1. MEROPENEM 1GM FRESENIUS [Suspect]
     Active Substance: MEROPENEM
     Indication: CELLULITIS
     Route: 042
     Dates: start: 20161118, end: 20161206

REACTIONS (3)
  - Rash generalised [None]
  - Infusion related reaction [None]
  - Anaphylactic reaction [None]

NARRATIVE: CASE EVENT DATE: 20161205
